FAERS Safety Report 8471810-9 (Version None)
Quarter: 2012Q2

REPORT INFORMATION
  Report Type: 
  Country: None (occurrence: None)
  Receive Date: 20120627
  Receipt Date: 20120618
  Transmission Date: 20120825
  Serious: Yes (Other)
  Sender: FDA-Public Use
  Company Number: CA-JNJFOC-20120610234

PATIENT
  Sex: Female
  Weight: 91 kg

DRUGS (19)
  1. REMICADE [Suspect]
     Indication: CROHN'S DISEASE
     Route: 042
     Dates: start: 20090713
  2. METHOTREXATE [Suspect]
     Indication: PRODUCT USED FOR UNKNOWN INDICATION
     Route: 065
  3. MESALAMINE [Concomitant]
     Route: 065
  4. GABAPENTIN [Concomitant]
     Route: 065
  5. TYLENOL W/ CODEINE NO. 3 [Concomitant]
     Route: 048
  6. FOLIC ACID [Concomitant]
     Route: 065
  7. REMICADE [Suspect]
     Route: 042
     Dates: start: 20120616
  8. REMICADE [Suspect]
     Route: 042
     Dates: start: 20120616
  9. VALPROIC ACID [Concomitant]
     Route: 065
  10. FLEXINOL [Concomitant]
     Route: 065
  11. GRAVOL TAB [Concomitant]
     Indication: PREMEDICATION
     Route: 065
  12. LIPITOR [Concomitant]
     Route: 065
  13. MULTI-VITAMINS [Concomitant]
     Route: 065
  14. DEMEROL [Concomitant]
     Indication: PREMEDICATION
     Route: 065
  15. PREDNISONE TAB [Concomitant]
     Route: 065
  16. REMICADE [Suspect]
     Indication: ARTHRITIS
     Route: 042
     Dates: start: 20090713
  17. BENADRYL [Concomitant]
     Indication: PREMEDICATION
     Route: 042
  18. ALL OTHER THERAPEUTICS [Concomitant]
     Route: 065
  19. ACETAMINOPHEN [Concomitant]
     Indication: PREMEDICATION
     Route: 048

REACTIONS (6)
  - DYSPNOEA [None]
  - HERPES VIRUS INFECTION [None]
  - STOMATITIS [None]
  - CYSTITIS [None]
  - PRURITUS [None]
  - INFUSION RELATED REACTION [None]
